FAERS Safety Report 15979798 (Version 1)
Quarter: 2019Q1

REPORT INFORMATION
  Report Type: Spontaneous
  Country: US (occurrence: US)
  Receive Date: 20190218
  Receipt Date: 20190218
  Transmission Date: 20190418
  Serious: Yes (Life-Threatening, Other)
  Sender: FDA-Public Use
  Company Number: None

PATIENT
  Age: 57 Year
  Sex: Female
  Weight: 51.75 kg

DRUGS (3)
  1. MARCAINE [Suspect]
     Active Substance: BUPIVACAINE HYDROCHLORIDE
     Indication: SURGERY
     Dosage: ?          QUANTITY:1 INJECTION(S);?
     Dates: start: 20180212, end: 20180212
  2. ULTRAM [Suspect]
     Active Substance: TRAMADOL HYDROCHLORIDE
     Indication: PROCEDURAL PAIN
     Dosage: ?          QUANTITY:1 TABLET(S);?
     Dates: start: 20180212, end: 20180212
  3. ZOLPIDEM [Concomitant]
     Active Substance: ZOLPIDEM\ZOLPIDEM TARTRATE

REACTIONS (11)
  - Cardiac arrest [None]
  - Blood pressure decreased [None]
  - Tinnitus [None]
  - Presyncope [None]
  - Anaesthetic complication [None]
  - Procedural complication [None]
  - Feeling abnormal [None]
  - Toxicity to various agents [None]
  - Decreased appetite [None]
  - Headache [None]
  - Seizure [None]

NARRATIVE: CASE EVENT DATE: 20180212
